FAERS Safety Report 7396455-3 (Version None)
Quarter: 2011Q2

REPORT INFORMATION
  Report Type: 
  Country: None (occurrence: None)
  Receive Date: 20110406
  Receipt Date: 20101015
  Transmission Date: 20111010
  Serious: Yes (Hospitalization, Other)
  Sender: FDA-Public Use
  Company Number: US-BAYER-201010027NA

PATIENT
  Sex: Female
  Weight: 136 kg

DRUGS (2)
  1. YAZ [Suspect]
     Indication: PRODUCT USED FOR UNKNOWN INDICATION
     Route: 048
  2. YASMIN [Suspect]
     Indication: ACNE
     Dosage: UNK
     Route: 048
     Dates: start: 20030101, end: 20040101

REACTIONS (4)
  - INJURY [None]
  - CHOLELITHIASIS [None]
  - CHOLECYSTITIS [None]
  - CHOLECYSTECTOMY [None]
